FAERS Safety Report 7624495-5 (Version None)
Quarter: 2011Q3

REPORT INFORMATION
  Report Type: 
  Country: None (occurrence: None)
  Receive Date: 20110720
  Receipt Date: 20110713
  Transmission Date: 20111222
  Serious: Yes (Congenital Anomaly, Other)
  Sender: FDA-Public Use
  Company Number: US-PFIZER INC-2011159786

PATIENT
  Sex: Female
  Weight: 3.63 kg

DRUGS (4)
  1. EFFEXOR [Suspect]
     Dosage: UNK
     Route: 064
  2. IBUPROFEN [Concomitant]
     Dosage: UNK
     Route: 064
  3. ERYTHROMYCIN [Concomitant]
     Dosage: UNK
     Route: 064
  4. ZOLOFT [Suspect]
     Indication: DEPRESSION
     Dosage: UNK
     Route: 064

REACTIONS (2)
  - MENINGOCELE [None]
  - MATERNAL EXPOSURE DURING PREGNANCY [None]
